FAERS Safety Report 5134155-0 (Version None)
Quarter: 2006Q4

REPORT INFORMATION
  Report Type: 
  Country: None (occurrence: None)
  Receive Date: 20061024
  Receipt Date: 20061016
  Transmission Date: 20070319
  Serious: Yes (Hospitalization)
  Sender: FDA-Public Use
  Company Number: FR-BOEHRINGER INGELHEIM PHARMACEUTICALS, INC.-2006-FF-01102FF

PATIENT
  Age: 48 Year
  Sex: Male

DRUGS (2)
  1. VIRAMUNE [Suspect]
     Indication: ACQUIRED IMMUNODEFICIENCY SYNDROME
     Route: 048
     Dates: start: 20040630
  2. KALETRA [Concomitant]
     Indication: ACQUIRED IMMUNODEFICIENCY SYNDROME
     Route: 048
     Dates: start: 20040630

REACTIONS (1)
  - ATRIAL FIBRILLATION [None]
